FAERS Safety Report 21954527 (Version 3)
Quarter: 2023Q1

REPORT INFORMATION
  Report Type: Report from Study
  Country: BR (occurrence: BR)
  Receive Date: 20230205
  Receipt Date: 20230331
  Transmission Date: 20230418
  Serious: Yes (Other)
  Sender: FDA-Public Use
  Company Number: BR-JNJFOC-20230162905

PATIENT
  Sex: Female
  Weight: 80 kg

DRUGS (2)
  1. SIMPONI [Suspect]
     Active Substance: GOLIMUMAB
     Indication: Rheumatoid arthritis
     Route: 058
     Dates: start: 20150515
  2. SIMPONI [Suspect]
     Active Substance: GOLIMUMAB
     Route: 058

REACTIONS (18)
  - Cerebrovascular accident [Unknown]
  - Arrhythmia [Unknown]
  - Paraesthesia [Unknown]
  - Pain [Unknown]
  - Rash [Unknown]
  - Hepatomegaly [Unknown]
  - Abdominal distension [Unknown]
  - Sinusitis [Unknown]
  - Urinary tract infection [Unknown]
  - Eye swelling [Unknown]
  - Hypertension [Unknown]
  - Product complaint [Unknown]
  - Injection related reaction [Unknown]
  - Pruritus [Unknown]
  - Headache [Unknown]
  - Vomiting [Unknown]
  - Hypoaesthesia [Unknown]
  - Bronchitis [Unknown]
